FAERS Safety Report 5179931-3 (Version None)
Quarter: 2006Q4

REPORT INFORMATION
  Report Type: 
  Country: None (occurrence: None)
  Receive Date: 20061211
  Receipt Date: 20061129
  Transmission Date: 20070319
  Serious: Yes (Other)
  Sender: FDA-Public Use
  Company Number: 2006148686

PATIENT
  Sex: Male

DRUGS (5)
  1. VIAGRA [Suspect]
     Indication: ERECTILE DYSFUNCTION
     Dosage: 50 MG (50 MG, 1 IN AS NECESSARY), ORAL
     Route: 048
     Dates: start: 20010101
  2. CILOSTAZOL [Concomitant]
  3. SARIDONE (CAFFEINE, PHENACETIN, PROPYHENAZONE) [Concomitant]
  4. OMEPRAZOLE [Concomitant]
  5. RANITIDINE [Concomitant]

REACTIONS (2)
  - MALAISE [None]
  - SKIN DISORDER [None]
